FAERS Safety Report 25690804 (Version 1)
Quarter: 2025Q3

REPORT INFORMATION
  Report Type: Spontaneous
  Country: US (occurrence: None)
  Receive Date: 20250816
  Receipt Date: 20250816
  Transmission Date: 20251020
  Serious: Yes (Disabling)
  Sender: FDA-CTU
  Company Number: None

PATIENT
  Age: 55 Year
  Sex: Female
  Weight: 53.55 kg

DRUGS (2)
  1. FARXIGA [Suspect]
     Active Substance: DAPAGLIFLOZIN PROPANEDIOL
     Indication: Diabetes mellitus
     Route: 048
     Dates: start: 20240513, end: 20250701
  2. SODIUM FLUORIDE [Suspect]
     Active Substance: SODIUM FLUORIDE

REACTIONS (12)
  - Dry mouth [None]
  - Dyspnoea [None]
  - Mouth breathing [None]
  - Dysphagia [None]
  - Dental caries [None]
  - Insurance issue [None]
  - Therapy change [None]
  - Psoriasis [None]
  - Eczema [None]
  - Trichorrhexis [None]
  - Emotional distress [None]
  - Economic problem [None]
